FAERS Safety Report 7245845-8 (Version None)
Quarter: 2011Q1

REPORT INFORMATION
  Report Type: 
  Country: None (occurrence: None)
  Receive Date: 20110126
  Receipt Date: 20110118
  Transmission Date: 20110831
  Serious: Yes (Hospitalization, Other)
  Sender: FDA-Public Use
  Company Number: US-MERCK-0906USA00278

PATIENT
  Age: 71 Year
  Sex: Female
  Weight: 65 kg

DRUGS (12)
  1. ALBUTEROL [Concomitant]
     Route: 065
  2. VITAMIN D (UNSPECIFIED) [Concomitant]
     Route: 065
  3. FOSAMAX PLUS D [Suspect]
     Route: 048
     Dates: start: 20060801
  4. CALCIUM (UNSPECIFIED) [Concomitant]
     Route: 065
  5. CHLORDIAZEPOXIDE [Concomitant]
     Route: 065
  6. GLUCOSAMINE [Concomitant]
     Route: 065
  7. FOSAMAX [Suspect]
     Route: 048
     Dates: start: 20020701, end: 20060101
  8. VITAMINS (UNSPECIFIED) [Concomitant]
     Route: 065
  9. FOSAMAX [Suspect]
     Indication: OSTEOPOROSIS
     Route: 048
     Dates: start: 19990301, end: 20020701
  10. SEREVENT [Concomitant]
     Route: 065
  11. ZYRTEC [Concomitant]
     Route: 065
  12. ATROVENT [Concomitant]
     Route: 065

REACTIONS (21)
  - DENTAL PULP DISORDER [None]
  - SPEECH DISORDER [None]
  - OSTEONECROSIS [None]
  - TOOTH ABSCESS [None]
  - CORNEAL ABRASION [None]
  - DRUG INEFFECTIVE [None]
  - SINUSITIS [None]
  - OSTEOMYELITIS [None]
  - TOOTH DISORDER [None]
  - DIARRHOEA [None]
  - ABSCESS JAW [None]
  - OSTEONECROSIS OF JAW [None]
  - SPINAL OSTEOARTHRITIS [None]
  - ALVEOLAR OSTEITIS [None]
  - FISTULA [None]
  - SIALOADENITIS [None]
  - RASH [None]
  - ABDOMINAL DISCOMFORT [None]
  - CELLULITIS [None]
  - ORAL TORUS [None]
  - DENTAL FISTULA [None]
